FAERS Safety Report 8942448 (Version 2)
Quarter: 2013Q1

REPORT INFORMATION
  Report Type: Spontaneous
  Country: US (occurrence: US)
  Receive Date: 20121204
  Receipt Date: 20130220
  Transmission Date: 20140127
  Serious: Yes (Hospitalization)
  Sender: FDA-Public Use
  Company Number: US-ELI_LILLY_AND_COMPANY-US201211008110

PATIENT
  Age: 70 None
  Sex: Male

DRUGS (6)
  1. HUMALOG LISPRO [Suspect]
     Indication: TYPE 2 DIABETES MELLITUS
     Dosage: 14 U, TID
  2. HUMALOG LISPRO [Suspect]
     Dosage: 26 U, TID
     Dates: start: 20121114
  3. HUMALOG LISPRO [Suspect]
     Dosage: 28 U, TID
     Dates: start: 20121119
  4. HUMALOG LISPRO [Suspect]
     Dosage: 30 U, TID
     Dates: start: 20121120
  5. HUMALOG LISPRO [Suspect]
     Dosage: 26 U, TID
     Dates: start: 20121121
  6. LANTUS [Concomitant]

REACTIONS (6)
  - Blood glucose increased [Recovered/Resolved]
  - Hepatic cirrhosis [Not Recovered/Not Resolved]
  - Renal disorder [Not Recovered/Not Resolved]
  - Hepatic steatosis [Unknown]
  - Malaise [Unknown]
  - Tremor [Recovered/Resolved]
